FAERS Safety Report 4371446-5 (Version None)
Quarter: 2004Q2

REPORT INFORMATION
  Report Type: 
  Country: None (occurrence: None)
  Receive Date: 20040607
  Receipt Date: 20040531
  Transmission Date: 20050107
  Serious: Yes (Death, Hospitalization)
  Sender: FDA-Public Use
  Company Number: BW-BRISTOL-MYERS SQUIBB COMPANY-12600094

PATIENT
  Age: 29 Year
  Sex: Female

DRUGS (3)
  1. STAVUDINE [Suspect]
     Indication: HIV INFECTION
     Dates: start: 20040510
  2. LAMIVUDINE [Suspect]
     Indication: HIV INFECTION
     Dates: start: 20040510
  3. NEVIRAPINE [Suspect]
     Indication: HIV INFECTION
     Dates: start: 20040510

REACTIONS (5)
  - ARTHRALGIA [None]
  - CONFUSIONAL STATE [None]
  - HEPATOTOXICITY [None]
  - JAUNDICE [None]
  - RESPIRATORY DISTRESS [None]
